FAERS Safety Report 16633138 (Version 1)
Quarter: 2019Q3

REPORT INFORMATION
  Report Type: Spontaneous
  Country: BR (occurrence: BR)
  Receive Date: 20190725
  Receipt Date: 20190725
  Transmission Date: 20191004
  Serious: Yes (Hospitalization, Other)
  Sender: FDA-Public Use
  Company Number: BR-B.I. PHARMACEUTICALS,INC./RIDGEFIELD-2019-BI-030675

PATIENT
  Age: 51 Year
  Sex: Male

DRUGS (2)
  1. PRADAXA [Suspect]
     Active Substance: DABIGATRAN ETEXILATE MESYLATE
     Indication: ATRIAL FIBRILLATION
     Route: 065
  2. CLOPIDOGREL [Concomitant]
     Active Substance: CLOPIDOGREL BISULFATE
     Indication: PRODUCT USED FOR UNKNOWN INDICATION
     Route: 065

REACTIONS (7)
  - Embolic stroke [Unknown]
  - Melaena [Recovered/Resolved]
  - Peripheral ischaemia [Unknown]
  - Sensory level abnormal [Recovered/Resolved]
  - Haemodynamic instability [Recovered/Resolved]
  - Dyspnoea [Recovered/Resolved]
  - Artery dissection [Unknown]
